FAERS Safety Report 7815143-X (Version None)
Quarter: 2011Q4

REPORT INFORMATION
  Report Type: 
  Country: None (occurrence: None)
  Receive Date: 20111014
  Receipt Date: 20111014
  Transmission Date: 20120403
  Serious: Yes (Other)
  Sender: FDA-Public Use
  Company Number: None

PATIENT
  Age: 32 Year
  Sex: Female
  Weight: 107.95 kg

DRUGS (8)
  1. XANAX [Suspect]
     Indication: ANXIETY
     Dosage: 0.25 MG
     Route: 048
     Dates: start: 20110902, end: 20110903
  2. XANAX [Suspect]
     Indication: SLEEP DISORDER
     Dosage: 0.25 MG
     Route: 048
     Dates: start: 20110902, end: 20110903
  3. PERCOCET [Concomitant]
     Route: 048
  4. FOLIC ACID [Concomitant]
  5. METHOTREXATE [Concomitant]
  6. RITALIN [Concomitant]
     Route: 048
  7. PREDNISONE [Concomitant]
     Route: 048
  8. ENBREL [Concomitant]

REACTIONS (4)
  - ANXIETY [None]
  - FEAR [None]
  - INSOMNIA [None]
  - PARADOXICAL DRUG REACTION [None]
